FAERS Safety Report 7547298-9 (Version None)
Quarter: 2011Q2

REPORT INFORMATION
  Report Type: 
  Country: None (occurrence: None)
  Receive Date: 20110614
  Receipt Date: 20090416
  Transmission Date: 20111010
  Serious: Yes (Death, Hospitalization)
  Sender: FDA-Public Use
  Company Number: US-BAYER-200918349NA

PATIENT
  Age: 67 Year
  Sex: Male
  Weight: 145 kg

DRUGS (20)
  1. FELODIPINE [Concomitant]
     Dosage: 10MG
     Route: 048
     Dates: start: 20050101
  2. LASIX [Concomitant]
     Dosage: 40MG
     Route: 048
     Dates: start: 20050101
  3. NIACIN [Concomitant]
     Dosage: 1000MG
     Route: 048
  4. NITROGLYCERIN [Concomitant]
     Dosage: UNK
     Route: 061
     Dates: start: 20060403
  5. LISINOPRIL [Concomitant]
     Dosage: 40MG
     Route: 048
  6. ALBUMIN (HUMAN) [Concomitant]
     Dosage: UNK
     Route: 042
     Dates: start: 20060406
  7. HEPARIN [Concomitant]
     Dosage: 450MG
     Route: 042
  8. MANNITOL [Concomitant]
     Dosage: 25GM
     Route: 042
     Dates: start: 20060406
  9. ATENOLOL [Concomitant]
     Dosage: 100MG
     Route: 048
  10. HEPARIN [Concomitant]
     Indication: THROMBOSIS PROPHYLAXIS
     Dosage: 5200UNITS
     Route: 058
     Dates: start: 20060403
  11. HEPARIN [Concomitant]
     Dosage: 550MG
  12. HEPARIN [Concomitant]
  13. MILRINONE [Concomitant]
     Dosage: 5MG LOADING BOLUS
     Route: 042
     Dates: start: 20060406
  14. RED BLOOD CELLS [Concomitant]
     Dosage: UNK
     Dates: start: 20060414
  15. TRASYLOL [Suspect]
     Indication: CORONARY ARTERY BYPASS
     Dosage: NO TEST DOSE, LOADING DOSE 200ML BOLUS THEN 50ML/HR
     Route: 042
     Dates: start: 20060406, end: 20060406
  16. DILTIAZEM [Concomitant]
     Dosage: 180MG
     Route: 048
     Dates: end: 20060404
  17. ACETYLSALICYLIC ACID SRT [Concomitant]
     Dosage: 325MG
     Route: 048
     Dates: start: 20060403
  18. PROTAMINE SULFATE [Concomitant]
     Dosage: 250MG
     Route: 042
     Dates: start: 20060406
  19. LOPRESSOR [Concomitant]
     Dosage: 50 MG, BID
     Route: 048
     Dates: start: 20060405
  20. VANCOMYCIN [Concomitant]
     Dosage: 1GM
     Route: 042
     Dates: start: 20060406

REACTIONS (4)
  - RENAL FAILURE [None]
  - PAIN [None]
  - UNEVALUABLE EVENT [None]
  - INJURY [None]
